FAERS Safety Report 9397221 (Version 2)
Quarter: 2013Q4

REPORT INFORMATION
  Report Type: Spontaneous
  Country: US (occurrence: US)
  Receive Date: 20130712
  Receipt Date: 20131011
  Transmission Date: 20140711
  Serious: No
  Sender: FDA-Public Use
  Company Number: US-GLAXOSMITHKLINE-A1021874A

PATIENT
  Age: 68 Year
  Sex: Male

DRUGS (2)
  1. JALYN [Suspect]
     Indication: BENIGN PROSTATIC HYPERPLASIA
     Dosage: 1CAP PER DAY
     Route: 048
     Dates: start: 2011
  2. NO CONCURRENT MEDICATION [Concomitant]

REACTIONS (6)
  - Therapeutic response decreased [Unknown]
  - Pain [Unknown]
  - Pollakiuria [Unknown]
  - Product quality issue [Unknown]
  - Insomnia [Unknown]
  - Drug ineffective [Unknown]
